FAERS Safety Report 13435425 (Version 1)
Quarter: 2017Q2

REPORT INFORMATION
  Report Type: Spontaneous
  Country: JP (occurrence: JP)
  Receive Date: 20170413
  Receipt Date: 20170413
  Transmission Date: 20170830
  Serious: Yes (Other)
  Sender: FDA-Public Use
  Company Number: JP-GLAXOSMITHKLINE-JP2017JPN049677

PATIENT
  Age: 74 Year
  Sex: Male

DRUGS (11)
  1. SEREVENT DISKUS [Suspect]
     Active Substance: SALMETEROL XINAFOATE
     Indication: COUGH
     Route: 055
     Dates: start: 2015, end: 20170406
  2. ALLORIN [Concomitant]
     Dosage: UNK
  3. ASVERIN (TIPEPIDINE HIBENZATE) [Concomitant]
     Active Substance: TIPEPIDINE HIBENZATE
     Dosage: UNK
  4. URIEF [Concomitant]
     Active Substance: SILODOSIN
     Dosage: UNK
  5. OMEPRAZOLE. [Concomitant]
     Active Substance: OMEPRAZOLE
     Dosage: UNK
  6. VOLTAREN [Concomitant]
     Active Substance: DICLOFENAC SODIUM
     Dosage: UNK
  7. MUCOSTA [Concomitant]
     Active Substance: REBAMIPIDE
     Dosage: UNK
  8. PULMICORT TURBUHALER [Concomitant]
     Active Substance: BUDESONIDE
     Dosage: UNK
  9. AMLODIPINE [Concomitant]
     Active Substance: AMLODIPINE BESYLATE
     Dosage: UNK
  10. MYSLEE [Concomitant]
     Active Substance: ZOLPIDEM TARTRATE
     Dosage: UNK
  11. BETANIS [Concomitant]
     Active Substance: MIRABEGRON
     Dosage: UNK

REACTIONS (5)
  - Muscle spasms [Not Recovered/Not Resolved]
  - Retinal detachment [Unknown]
  - Off label use [Unknown]
  - Cataract [Unknown]
  - Product use in unapproved indication [Unknown]

NARRATIVE: CASE EVENT DATE: 201701
